FAERS Safety Report 5564935-9 (Version None)
Quarter: 2007Q4

REPORT INFORMATION
  Report Type: 
  Country: None (occurrence: None)
  Receive Date: 20071218
  Receipt Date: 20071213
  Transmission Date: 20080405
  Serious: Yes (Life-Threatening, Hospitalization)
  Sender: FDA-Public Use
  Company Number: A0699563A

PATIENT
  Age: 58 Year
  Sex: Male

DRUGS (2)
  1. LAPATINIB [Suspect]
     Dosage: 1500MG PER DAY
     Route: 048
     Dates: start: 20071121
  2. GEMCITABINE [Suspect]
     Dosage: 1GM2 WEEKLY
     Route: 042
     Dates: start: 20071207

REACTIONS (7)
  - ANOREXIA [None]
  - ASTHENIA [None]
  - CEREBRAL ISCHAEMIA [None]
  - DEHYDRATION [None]
  - FATIGUE [None]
  - HEMIPARESIS [None]
  - NAUSEA [None]
